FAERS Safety Report 22386936 (Version 1)
Quarter: 2023Q2

REPORT INFORMATION
  Report Type: Spontaneous
  Country: CA (occurrence: CA)
  Receive Date: 20230531
  Receipt Date: 20230531
  Transmission Date: 20230722
  Serious: Yes (Hospitalization, Other)
  Sender: FDA-Public Use
  Company Number: CA-CELLTRION INC.-2018CA020269

PATIENT

DRUGS (28)
  1. INFLECTRA [Suspect]
     Active Substance: INFLIXIMAB-DYYB
     Indication: Rheumatoid arthritis
     Dosage: 200 MG, EVERY 8 WEEKS, REMICADE SWITCH PATIENT
     Route: 042
     Dates: start: 20180328, end: 20180523
  2. INFLECTRA [Suspect]
     Active Substance: INFLIXIMAB-DYYB
     Dosage: 200 MG, EVERY 8 WEEKS
     Route: 042
     Dates: start: 20180523
  3. INFLECTRA [Suspect]
     Active Substance: INFLIXIMAB-DYYB
     Dosage: 200 MG, EVERY 10 WEEKS
     Route: 041
     Dates: start: 20180803
  4. INFLECTRA [Suspect]
     Active Substance: INFLIXIMAB-DYYB
     Dosage: 200 MG, EVERY 10 WEEKS
     Route: 042
     Dates: start: 20181011
  5. INFLECTRA [Suspect]
     Active Substance: INFLIXIMAB-DYYB
     Dosage: 200 MG, EVERY 10 WEEKS
     Route: 042
     Dates: start: 20190111
  6. INFLECTRA [Suspect]
     Active Substance: INFLIXIMAB-DYYB
     Dosage: 200 MG, EVERY 10 WEEKS
     Route: 042
     Dates: start: 20200318
  7. INFLECTRA [Suspect]
     Active Substance: INFLIXIMAB-DYYB
     Dosage: 200 MG, EVERY 10 WEEKS
     Route: 042
     Dates: start: 20200527
  8. INFLECTRA [Suspect]
     Active Substance: INFLIXIMAB-DYYB
     Dosage: 200 MG, EVERY 10 WEEKS
     Route: 042
     Dates: start: 20200819
  9. INFLECTRA [Suspect]
     Active Substance: INFLIXIMAB-DYYB
     Dosage: 200 MG, EVERY 10 WEEKS
     Route: 042
     Dates: start: 20201111
  10. INFLECTRA [Suspect]
     Active Substance: INFLIXIMAB-DYYB
     Dosage: 200 MG, EVERY 10 WEEKS
     Route: 042
     Dates: start: 20210120
  11. INFLECTRA [Suspect]
     Active Substance: INFLIXIMAB-DYYB
     Dosage: 200 MG, EVERY 10 WEEKS
     Route: 042
     Dates: start: 20210330
  12. INFLECTRA [Suspect]
     Active Substance: INFLIXIMAB-DYYB
     Dosage: 200 MG, EVERY 10 WEEKS
     Route: 042
     Dates: start: 20210610
  13. INFLECTRA [Suspect]
     Active Substance: INFLIXIMAB-DYYB
     Dosage: 200 MG, EVERY 10 WEEKS
     Route: 042
     Dates: start: 20220112
  14. INFLECTRA [Suspect]
     Active Substance: INFLIXIMAB-DYYB
     Dosage: 200 MG, EVERY 10 WEEKS
     Route: 042
     Dates: start: 20220321
  15. INFLECTRA [Suspect]
     Active Substance: INFLIXIMAB-DYYB
     Dosage: 200 MG, EVERY 10 WEEKS
     Route: 042
     Dates: start: 20221019
  16. INFLECTRA [Suspect]
     Active Substance: INFLIXIMAB-DYYB
     Dosage: 200 MG, EVERY 10 WEEKS
     Route: 042
     Dates: start: 20230110
  17. INFLECTRA [Suspect]
     Active Substance: INFLIXIMAB-DYYB
     Dosage: 200 MG, EVERY 10 WEEKS
     Route: 042
     Dates: start: 20230110
  18. INFLECTRA [Suspect]
     Active Substance: INFLIXIMAB-DYYB
     Dosage: 200 MG, EVERY 10 WEEKS
     Route: 041
     Dates: start: 20230321
  19. ACETAMINOPHEN [Concomitant]
     Active Substance: ACETAMINOPHEN
     Indication: Premedication
     Dosage: 1000 MG
     Route: 048
     Dates: start: 20210120
  20. ACETAMINOPHEN [Concomitant]
     Active Substance: ACETAMINOPHEN
     Dosage: 1000 MG
     Route: 048
     Dates: start: 20210610
  21. ASPIRIN [Concomitant]
     Active Substance: ASPIRIN
     Dosage: UNK
     Route: 065
  22. ALENDRONATE [Concomitant]
     Active Substance: ALENDRONATE SODIUM
     Dosage: UNK
  23. DIPHENHYDRAMINE [Concomitant]
     Active Substance: DIPHENHYDRAMINE
     Indication: Premedication
     Dosage: 25 MG
     Route: 030
     Dates: start: 20210120
  24. DIPHENHYDRAMINE [Concomitant]
     Active Substance: DIPHENHYDRAMINE
     Dosage: 25 MG
     Route: 030
     Dates: start: 20210610
  25. LEUCOVORIN [Concomitant]
     Active Substance: LEUCOVORIN
     Dosage: 1 DF (DOSAGE INFORMATION NOT AVAILABLE)
     Route: 042
  26. LEUCOVORIN [Concomitant]
     Active Substance: LEUCOVORIN
     Dosage: 1 DF (DOSAGE INFORMATION NOT AVAILABL)
     Route: 041
  27. METHOTREXATE [Concomitant]
     Active Substance: METHOTREXATE
     Dosage: 1 DF (DOSAGE INFORMATION NOT AVAILABLE)
     Route: 065
  28. ERGOCALCIFEROL [Concomitant]
     Active Substance: ERGOCALCIFEROL
     Dosage: UNK

REACTIONS (13)
  - Ear infection bacterial [Recovering/Resolving]
  - Inflammation [Recovering/Resolving]
  - Off label use [Unknown]
  - Inappropriate schedule of product administration [Unknown]
  - Off label use [Unknown]
  - Weight increased [Unknown]
  - Weight decreased [Unknown]
  - Heart rate decreased [Not Recovered/Not Resolved]
  - Blood pressure systolic increased [Not Recovered/Not Resolved]
  - Osteoporosis [Unknown]
  - Weight bearing difficulty [Unknown]
  - Impaired quality of life [Unknown]
  - Exposure to SARS-CoV-2 [Unknown]

NARRATIVE: CASE EVENT DATE: 20180328
